FAERS Safety Report 24265589 (Version 2)
Quarter: 2024Q3

REPORT INFORMATION
  Report Type: Spontaneous
  Country: US (occurrence: US)
  Receive Date: 20240829
  Receipt Date: 20240912
  Transmission Date: 20241017
  Serious: No
  Sender: ABBVIE
  Company Number: US-ABBVIE-5888047

PATIENT
  Sex: Female
  Weight: 65.77 kg

DRUGS (2)
  1. HUMIRA [Suspect]
     Active Substance: ADALIMUMAB
     Indication: Crohn^s disease
     Dosage: START DATE TEXT: YEAR 2012 OR 2013.?STOP DATE TEXT: YEAR 2012 OR 2013.
     Route: 058
  2. RINVOQ [Concomitant]
     Active Substance: UPADACITINIB
     Indication: Crohn^s disease
     Dates: start: 202312

REACTIONS (4)
  - Joint swelling [Recovered/Resolved]
  - Arthralgia [Recovered/Resolved]
  - Hypersensitivity [Recovered/Resolved]
  - Gait inability [Recovered/Resolved]
